FAERS Safety Report 9200039 (Version 1)
Quarter: 2013Q1

REPORT INFORMATION
  Report Type: Spontaneous
  Country: CH (occurrence: CH)
  Receive Date: 20130329
  Receipt Date: 20130329
  Transmission Date: 20140127
  Serious: Yes (Hospitalization)
  Sender: FDA-Public Use
  Company Number: CH-ASTRAZENECA-2013SE19369

PATIENT
  Age: 75 Year
  Sex: Female
  Weight: 80.3 kg

DRUGS (13)
  1. NEXIUM [Suspect]
     Indication: GASTROOESOPHAGEAL REFLUX DISEASE
     Route: 048
  2. DAFALGAN [Interacting]
     Indication: PAIN
     Route: 048
     Dates: start: 20130201
  3. SINTROM [Interacting]
     Indication: COAGULOPATHY
     Route: 048
     Dates: end: 20130211
  4. SINTROM [Interacting]
     Indication: ATRIAL FIBRILLATION
     Route: 048
     Dates: end: 20130211
  5. SIMVASTATIN [Interacting]
     Indication: MYOCARDIAL ISCHAEMIA
     Route: 048
  6. LIORESAL [Concomitant]
     Indication: QUADRIPLEGIA
     Route: 048
  7. SIRDALUD [Concomitant]
     Indication: QUADRIPLEGIA
     Route: 048
  8. ZOLPIDEM [Concomitant]
     Indication: INSOMNIA
     Route: 048
     Dates: start: 20130212
  9. TEMESTA [Concomitant]
     Indication: ANXIETY DISORDER
     Route: 048
     Dates: start: 20130211
  10. LAXOBERON [Concomitant]
     Indication: CONSTIPATION
     Route: 048
  11. ASPIRIN CARDIO [Concomitant]
     Indication: MYOCARDIAL ISCHAEMIA
     Route: 048
  12. TORASEMIDE [Concomitant]
     Indication: ESSENTIAL HYPERTENSION
     Route: 048
  13. DIOVAN [Concomitant]
     Indication: MYOCARDIAL ISCHAEMIA
     Route: 048

REACTIONS (2)
  - Drug interaction [Unknown]
  - Coagulopathy [Recovered/Resolved]
